FAERS Safety Report 24623937 (Version 1)
Quarter: 2024Q4

REPORT INFORMATION
  Report Type: Spontaneous
  Country: US (occurrence: None)
  Receive Date: 20241115
  Receipt Date: 20241115
  Transmission Date: 20250114
  Serious: Yes (Hospitalization)
  Sender: Public
  Company Number: None

PATIENT
  Age: 70 Year
  Sex: Male
  Weight: 147 kg

DRUGS (1)
  1. APIXABAN [Suspect]
     Active Substance: APIXABAN
     Indication: Atrial fibrillation
     Dosage: 5.00 MG TWICE  DAY ORAL
     Route: 048
     Dates: start: 20220525

REACTIONS (2)
  - Pulmonary embolism [None]
  - Therapy interrupted [None]

NARRATIVE: CASE EVENT DATE: 20240910
